FAERS Safety Report 6964978-4 (Version None)
Quarter: 2010Q3

REPORT INFORMATION
  Report Type: 
  Country: None (occurrence: None)
  Receive Date: 20100903
  Receipt Date: 20100824
  Transmission Date: 20110219
  Serious: Yes (Other)
  Sender: FDA-Public Use
  Company Number: US-B.I. PHARMACEUTICALS,INC./RIDGEFIELD-2010-BP-09787PF

PATIENT
  Sex: Female
  Weight: 54.43 kg

DRUGS (3)
  1. SPIRIVA [Suspect]
  2. XALATAN [Suspect]
     Indication: GLAUCOMA
  3. PROAIR HFA [Concomitant]

REACTIONS (2)
  - CATARACT [None]
  - INTRAOCULAR PRESSURE INCREASED [None]
